FAERS Safety Report 6379774-9 (Version None)
Quarter: 2009Q3

REPORT INFORMATION
  Report Type: 
  Country: None (occurrence: None)
  Receive Date: 20090924
  Receipt Date: 20090924
  Transmission Date: 20100115
  Serious: Yes (Other)
  Sender: FDA-Public Use
  Company Number: None

PATIENT
  Sex: Female
  Weight: 84.1422 kg

DRUGS (2)
  1. TRAZODONE HCL [Suspect]
     Indication: INSOMNIA
     Dosage: 50 MG QHS PO
     Route: 048
     Dates: start: 20090412, end: 20090909
  2. TRAZODONE HCL [Suspect]
     Indication: MAJOR DEPRESSION
     Dosage: 50 MG QHS PO
     Route: 048
     Dates: start: 20090412, end: 20090909

REACTIONS (2)
  - DRUG INEFFECTIVE [None]
  - PRODUCT SUBSTITUTION ISSUE [None]
